FAERS Safety Report 19890479 (Version 1)
Quarter: 2021Q3

REPORT INFORMATION
  Report Type: Spontaneous
  Country: US (occurrence: US)
  Receive Date: 20210928
  Receipt Date: 20210928
  Transmission Date: 20211014
  Serious: Yes (Hospitalization, Other)
  Sender: FDA-Public Use
  Company Number: None

PATIENT
  Age: 56 Year
  Sex: Male
  Weight: 140 kg

DRUGS (1)
  1. YESCARTA [Suspect]
     Active Substance: AXICABTAGENE CILOLEUCEL
     Indication: FOLLICULAR LYMPHOMA
     Dates: start: 20210802

REACTIONS (4)
  - Neurotoxicity [None]
  - Infection [None]
  - Mental status changes [None]
  - Condition aggravated [None]

NARRATIVE: CASE EVENT DATE: 20210806
